FAERS Safety Report 6331111-1 (Version None)
Quarter: 2009Q3

REPORT INFORMATION
  Report Type: 
  Country: None (occurrence: None)
  Receive Date: 20090827
  Receipt Date: 20090817
  Transmission Date: 20100115
  Serious: Yes (Other)
  Sender: FDA-Public Use
  Company Number: US-BAYER-200930114NA

PATIENT
  Sex: Female

DRUGS (2)
  1. LEUKINE [Suspect]
     Indication: LUNG DISORDER
     Route: 055
  2. LEUKINE [Suspect]
     Route: 058
     Dates: start: 20050101

REACTIONS (1)
  - MARROW HYPERPLASIA [None]
